FAERS Safety Report 25044382 (Version 1)
Quarter: 2025Q1

REPORT INFORMATION
  Report Type: Spontaneous
  Country: US (occurrence: US)
  Receive Date: 20250306
  Receipt Date: 20250306
  Transmission Date: 20250408
  Serious: Yes (Other)
  Sender: AUROBINDO
  Company Number: US-MLMSERVICE-20250213-PI401637-00271-1

PATIENT
  Age: 24 Year
  Sex: Male

DRUGS (1)
  1. PREDNISONE [Suspect]
     Active Substance: PREDNISONE
     Indication: Henoch-Schonlein purpura
     Dosage: 70 MILLIGRAM, ONCE A DAY (STARTED THE PATIENT ON PREDNISONE 70 MG ONCE DAILY FOR 7 DAYS WITH A PLAN
     Route: 048

REACTIONS (1)
  - White blood cell count increased [Unknown]
